FAERS Safety Report 5619506-2 (Version None)
Quarter: 2008Q1

REPORT INFORMATION
  Report Type: 
  Country: None (occurrence: None)
  Receive Date: 20080108
  Receipt Date: 20070305
  Transmission Date: 20080703
  Serious: Yes (Other)
  Sender: FDA-Public Use
  Company Number: A03200701846

PATIENT
  Age: 29 Year
  Sex: Female

DRUGS (1)
  1. DEMEROL [Suspect]
     Dosage: ORAL
     Route: 048

REACTIONS (1)
  - GRAND MAL CONVULSION [None]
